FAERS Safety Report 7073055-6 (Version None)
Quarter: 2010Q4

REPORT INFORMATION
  Report Type: 
  Country: None (occurrence: None)
  Receive Date: 20101029
  Receipt Date: 20100416
  Transmission Date: 20110411
  Serious: No
  Sender: FDA-Public Use
  Company Number: A0855492A

PATIENT
  Age: 63 Year
  Sex: Female

DRUGS (25)
  1. ADVAIR DISKUS 100/50 [Suspect]
     Indication: ASTHMA
     Route: 055
  2. ADVAIR DISKUS 100/50 [Suspect]
     Route: 055
     Dates: start: 20100403
  3. ALBUTEROL [Concomitant]
     Route: 055
  4. SYNTHROID [Concomitant]
  5. INSULIN [Concomitant]
  6. MECLIZINE [Concomitant]
  7. STARLIX [Concomitant]
  8. PROVENTIL [Concomitant]
  9. ATENOLOL [Concomitant]
  10. ASPIRIN [Concomitant]
  11. LISINOPRIL [Concomitant]
  12. COLLDINE [Concomitant]
  13. ISOSORBIDE DINITRATE [Concomitant]
  14. NITRATE [Concomitant]
  15. NITROLINGUAL PUMPSPRAY [Concomitant]
  16. PLAVIX [Concomitant]
  17. VOMEX [Concomitant]
  18. FURIX [Concomitant]
  19. FOLIC ACID [Concomitant]
  20. PREVACID [Concomitant]
  21. ROVAMYCIN [Concomitant]
  22. NABUMETONE [Concomitant]
  23. TESSALON [Concomitant]
  24. LOMOTIL [Concomitant]
  25. ZOFRAN [Concomitant]

REACTIONS (3)
  - DRUG INEFFECTIVE [None]
  - PRURITUS [None]
  - URTICARIA [None]
